FAERS Safety Report 10105760 (Version 2)
Quarter: 2014Q3

REPORT INFORMATION
  Report Type: Other
  Country: US (occurrence: US)
  Receive Date: 20140424
  Receipt Date: 20140718
  Transmission Date: 20150326
  Serious: Yes (Other)
  Sender: FDA-Public Use
  Company Number: US-GSKPPD-2014GSK001103

PATIENT
  Sex: Male

DRUGS (2)
  1. AVANDIA [Suspect]
     Active Substance: ROSIGLITAZONE MALEATE
     Indication: DIABETES MELLITUS
     Route: 048
     Dates: start: 20040117, end: 20040718
  2. AVANDIA [Suspect]
     Active Substance: ROSIGLITAZONE MALEATE
     Route: 048
     Dates: start: 20040802, end: 20061209

REACTIONS (2)
  - Cerebrovascular accident [None]
  - Myocardial infarction [None]
